FAERS Safety Report 25239824 (Version 1)
Quarter: 2025Q2

REPORT INFORMATION
  Report Type: Spontaneous
  Country: US (occurrence: None)
  Receive Date: 20250424
  Receipt Date: 20250424
  Transmission Date: 20250716
  Serious: Yes (Other)
  Sender: FDA-CTU
  Company Number: None

PATIENT
  Age: 75 Year
  Sex: Male
  Weight: 69 kg

DRUGS (1)
  1. BUPRENORPHINE BUCCAL FILM [Suspect]
     Active Substance: BUPRENORPHINE HYDROCHLORIDE
     Indication: Pain
     Dosage: FREQUENCY : TWICE A DAY;?
     Route: 002
     Dates: start: 20240601

REACTIONS (2)
  - Lip and/or oral cavity cancer [None]
  - Squamous cell carcinoma of the oral cavity [None]

NARRATIVE: CASE EVENT DATE: 20250417
